FAERS Safety Report 9296668 (Version 3)
Quarter: 2016Q2

REPORT INFORMATION
  Report Type: Spontaneous
  Country: US (occurrence: US)
  Receive Date: 20130517
  Receipt Date: 20160503
  Transmission Date: 20160815
  Serious: Yes (Death, Hospitalization, Other)
  Sender: FDA-Public Use
  Company Number: US-009507513-1305USA009001

PATIENT
  Age: 84 Year
  Sex: Male

DRUGS (2)
  1. ASMANEX [Suspect]
     Active Substance: MOMETASONE FUROATE
     Dosage: 220 MICROGRAM, BID
     Route: 055
     Dates: start: 200905
  2. FORADIL [Suspect]
     Active Substance: FORMOTEROL FUMARATE
     Dosage: ONE INHALATION TWICE DAILY
     Route: 055
     Dates: start: 200905

REACTIONS (3)
  - Pneumonia [Unknown]
  - Jaundice [Fatal]
  - Hepatic cancer [Fatal]

NARRATIVE: CASE EVENT DATE: 201209
